FAERS Safety Report 14967031 (Version 1)
Quarter: 2018Q2

REPORT INFORMATION
  Report Type: Report from Study
  Country: JP (occurrence: JP)
  Receive Date: 20180604
  Receipt Date: 20180604
  Transmission Date: 20180711
  Serious: Yes (Life-Threatening)
  Sender: FDA-Public Use
  Company Number: JP-CHEPLA-C20170262_E

PATIENT
  Age: 63 Year
  Sex: Male

DRUGS (1)
  1. ALL-TRANS RETINOIC ACID (ATRA) [Suspect]
     Active Substance: TRETINOIN
     Indication: ACUTE PROMYELOCYTIC LEUKAEMIA
     Dosage: INDUCTION THERAPY

REACTIONS (1)
  - Leukaemia recurrent [Unknown]
